FAERS Safety Report 7110077-0 (Version None)
Quarter: 2010Q4

REPORT INFORMATION
  Report Type: 
  Country: None (occurrence: None)
  Receive Date: 20101118
  Receipt Date: 20101112
  Transmission Date: 20110411
  Serious: Yes (Other)
  Sender: FDA-Public Use
  Company Number: JP-BAYER-201015739BYL

PATIENT
  Age: 75 Year
  Sex: Male
  Weight: 64 kg

DRUGS (11)
  1. NEXAVAR [Suspect]
     Indication: HEPATIC NEOPLASM MALIGNANT
     Dosage: TOTAL DAILY DOSE: 800 MG  UNIT DOSE: 200 MG
     Route: 048
     Dates: start: 20100723, end: 20100726
  2. NEXAVAR [Suspect]
     Dosage: UNIT DOSE: 200 MG
     Route: 048
     Dates: start: 20100824, end: 20100903
  3. NEXAVAR [Suspect]
     Dosage: UNIT DOSE: 200 MG
     Route: 048
     Dates: start: 20100927, end: 20101019
  4. ALDACTONE [Concomitant]
     Dosage: UNIT DOSE: 25 MG
     Route: 048
  5. LASIX [Concomitant]
     Dosage: UNIT DOSE: 20 MG
     Route: 048
  6. KELNAC [Concomitant]
     Dosage: UNIT DOSE: 80 MG
     Route: 048
  7. URSO 250 [Concomitant]
     Dosage: UNIT DOSE: 100 MG
     Route: 048
  8. SHAKUYAKUKANZOUTOU [Concomitant]
     Dosage: UNIT DOSE: 2.5 G
     Route: 048
  9. GASTER D [Concomitant]
     Dosage: UNIT DOSE: 20 MG
     Route: 048
  10. KERATINAMIN [Concomitant]
     Route: 061
     Dates: start: 20100722
  11. DEPAS [Concomitant]
     Dosage: UNIT DOSE: 0.5 MG
     Route: 048

REACTIONS (3)
  - DECREASED APPETITE [None]
  - ENCEPHALOPATHY [None]
  - HYPERTENSION [None]
